FAERS Safety Report 9360033 (Version 1)
Quarter: 2013Q2

REPORT INFORMATION
  Report Type: Spontaneous
  Country: US (occurrence: None)
  Receive Date: 20130620
  Receipt Date: 20130620
  Transmission Date: 20140414
  Serious: Yes (Life-Threatening, Hospitalization)
  Sender: FDA-Public Use
  Company Number: None

PATIENT
  Age: 91 Year
  Sex: Male
  Weight: 65 kg

DRUGS (11)
  1. WARFARIN 3MG CADILA HEALTHCARE [Suspect]
     Dosage: 3MG 1 TIME DAILY PO
     Route: 048
  2. SULFAMETHOXAZOLE-TMP [Suspect]
  3. FLUCONAZOLE [Suspect]
  4. VIT. B [Concomitant]
  5. VIT. C [Concomitant]
  6. VIT. D [Concomitant]
  7. PROSCAR [Concomitant]
  8. CARVEDILOL [Concomitant]
  9. GLIPIZIDE [Concomitant]
  10. LEVEMIR [Concomitant]
  11. METFORMIN [Concomitant]

REACTIONS (9)
  - Haemoglobin decreased [None]
  - Upper gastrointestinal haemorrhage [None]
  - International normalised ratio increased [None]
  - Respiratory failure [None]
  - Cardiac arrest [None]
  - Shock haemorrhagic [None]
  - Traumatic lung injury [None]
  - Duodenal ulcer [None]
  - Transfusion reaction [None]
